FAERS Safety Report 9630672 (Version 1)
Quarter: 2013Q4

REPORT INFORMATION
  Report Type: Spontaneous
  Country: US (occurrence: None)
  Receive Date: 20131016
  Receipt Date: 20131016
  Transmission Date: 20140711
  Serious: Yes (Disabling)
  Sender: FDA-Public Use
  Company Number: None

PATIENT
  Age: 63 Year
  Sex: Female
  Weight: 68.04 kg

DRUGS (8)
  1. ENOXAPARIN [Suspect]
     Route: 058
     Dates: start: 20130920, end: 20130925
  2. METOPROLOL [Concomitant]
  3. ASA [Concomitant]
  4. LASIX [Concomitant]
  5. WARFARIN [Concomitant]
  6. GABAPENTIN [Concomitant]
  7. AMIODARONE [Concomitant]
  8. VITAMINS [Concomitant]

REACTIONS (1)
  - Haematoma [None]
